FAERS Safety Report 10239202 (Version 1)
Quarter: 2014Q2

REPORT INFORMATION
  Report Type: Spontaneous
  Country: DE (occurrence: IT)
  Receive Date: 20140616
  Receipt Date: 20140616
  Transmission Date: 20141212
  Serious: Yes (Life-Threatening)
  Sender: FDA-Public Use
  Company Number: IT-FRI-1000068108

PATIENT
  Age: 74 Year
  Sex: Male

DRUGS (7)
  1. MEMANTINE [Suspect]
     Indication: VASCULAR DEMENTIA
     Dosage: 20 MG
     Route: 048
     Dates: start: 20140415, end: 20140604
  2. RIVASTIGMINE [Suspect]
     Indication: VASCULAR DEMENTIA
     Dosage: 5.5 MG
     Route: 048
     Dates: start: 20130101, end: 20140604
  3. ACETYLSALICYLIC ACID [Concomitant]
     Route: 048
  4. OLMESARTAN [Concomitant]
     Route: 048
  5. ALLOPURINOL [Concomitant]
     Route: 048
  6. ALPRAZOLAM [Concomitant]
  7. MELATONIN [Concomitant]

REACTIONS (2)
  - Suicide attempt [Not Recovered/Not Resolved]
  - Off label use [Recovered/Resolved]
